FAERS Safety Report 23954872 (Version 2)
Quarter: 2024Q2

REPORT INFORMATION
  Report Type: Spontaneous
  Country: CN (occurrence: CN)
  Receive Date: 20240610
  Receipt Date: 20240614
  Transmission Date: 20240716
  Serious: Yes (Other)
  Sender: FDA-Public Use
  Company Number: CN-002147023-NVSC2024CN120169

PATIENT
  Age: 80 Year
  Sex: Male
  Weight: 45 kg

DRUGS (3)
  1. CARBAMAZEPINE [Suspect]
     Active Substance: CARBAMAZEPINE
     Indication: Analgesic therapy
     Dosage: 0.1 G, BID
     Route: 048
     Dates: start: 20240522, end: 20240523
  2. CARBAMAZEPINE [Suspect]
     Active Substance: CARBAMAZEPINE
     Dosage: 0.2 G, BID
     Route: 048
     Dates: start: 20240523, end: 20240524
  3. CODEINE PHOSPHATE\IBUPROFEN [Concomitant]
     Active Substance: CODEINE PHOSPHATE\IBUPROFEN
     Indication: Analgesic therapy
     Dosage: 1 DOSAGE FORM, BID
     Route: 048
     Dates: start: 20240523

REACTIONS (3)
  - Dizziness [Recovering/Resolving]
  - Metamorphopsia [Recovering/Resolving]
  - Vomiting [Recovering/Resolving]

NARRATIVE: CASE EVENT DATE: 20240524
